FAERS Safety Report 23757720 (Version 1)
Quarter: 2024Q2

REPORT INFORMATION
  Report Type: Spontaneous
  Country: US (occurrence: US)
  Receive Date: 20240418
  Receipt Date: 20240418
  Transmission Date: 20240716
  Serious: Yes (Other)
  Sender: FDA-Public Use
  Company Number: US-STERISCIENCE B.V.-2024-ST-000453

PATIENT
  Age: 43 Year
  Sex: Female

DRUGS (3)
  1. AMPICILLIN AND SULBACTAM [Suspect]
     Active Substance: AMPICILLIN SODIUM\SULBACTAM SODIUM
     Indication: Acinetobacter infection
     Dosage: RECEIVED PROLONGED INFUSION OVER 4 HOURS
     Route: 065
  2. MEROPENEM [Suspect]
     Active Substance: MEROPENEM
     Indication: Acinetobacter infection
     Dosage: 2 GRAM, Q8H, OVER 3 HOURS
     Route: 065
  3. MINOCYCLINE [Suspect]
     Active Substance: MINOCYCLINE HYDROCHLORIDE
     Indication: Acinetobacter infection
     Dosage: 200 MILLIGRAM, EVERY 12 HOURS (BID), OVER A 1 HOUR
     Route: 065

REACTIONS (1)
  - Drug ineffective for unapproved indication [Unknown]
